FAERS Safety Report 17602754 (Version 4)
Quarter: 2021Q2

REPORT INFORMATION
  Report Type: Report from Study
  Country: None (occurrence: JP)
  Receive Date: 20200330
  Receipt Date: 20210630
  Transmission Date: 20210716
  Serious: Yes (Hospitalization)
  Sender: FDA-Public Use
  Company Number: JP-ABBVIE-18K-087-2424631-00

PATIENT
  Age: 57 Year
  Sex: Female

DRUGS (6)
  1. DUODOPA [Suspect]
     Active Substance: CARBIDOPA\LEVODOPA
     Dosage: MD 7.4ML; CD 3.0ML X 16HRS; ED 1.0ML X 4 TIMES
     Route: 050
     Dates: start: 20160917, end: 20170809
  2. DUODOPA [Suspect]
     Active Substance: CARBIDOPA\LEVODOPA
     Dosage: MD 7.4 ML; CD 3.2 ML/HRS X 16 HRS; ED 0.8 ML/UNIT X 4 TIMES
     Route: 050
     Dates: start: 20170809
  3. PRAMIPEXOLE HCL [Concomitant]
     Active Substance: PRAMIPEXOLE
     Indication: PARKINSON^S DISEASE
     Route: 048
     Dates: start: 20170202
  4. CARBIDOPA HYDRATE LEVODOPA MIXTURE [Concomitant]
     Indication: PARKINSON^S DISEASE
     Route: 048
  5. DUODOPA [Suspect]
     Active Substance: CARBIDOPA\LEVODOPA
     Indication: PARKINSON^S DISEASE
     Dosage: MD 7.4ML; CD 3.0ML/HRS; ED 1.0ML X 4 TIMES
     Route: 050
     Dates: start: 20141007
  6. MECOBALAMIN [Concomitant]
     Active Substance: METHYLCOBALAMIN
     Indication: PROPHYLAXIS
     Route: 048

REACTIONS (19)
  - Device occlusion [Recovered/Resolved]
  - Device occlusion [Recovered/Resolved]
  - Device dislocation [Not Recovered/Not Resolved]
  - Stoma site pain [Unknown]
  - Device occlusion [Recovered/Resolved]
  - Hospitalisation [Unknown]
  - Stoma site infection [Recovered/Resolved]
  - Constipation [Unknown]
  - Therapeutic product effect incomplete [Unknown]
  - Device difficult to use [Unknown]
  - Somnolence [Unknown]
  - On and off phenomenon [Unknown]
  - Peripheral coldness [Unknown]
  - Hypoaesthesia [Unknown]
  - Anaesthetic complication [Unknown]
  - Device occlusion [Recovered/Resolved]
  - Malaise [Unknown]
  - Dyskinesia [Not Recovered/Not Resolved]
  - Device alarm issue [Unknown]

NARRATIVE: CASE EVENT DATE: 20160930
